FAERS Safety Report 6412974-8 (Version None)
Quarter: 2009Q4

REPORT INFORMATION
  Report Type: 
  Country: None (occurrence: None)
  Receive Date: 20091023
  Receipt Date: 20091016
  Transmission Date: 20100525
  Serious: Yes (Other)
  Sender: FDA-Public Use
  Company Number: PHHY2009BR35949

PATIENT
  Sex: Male

DRUGS (2)
  1. EXELON [Suspect]
     Dosage: 9MG/5CM2
  2. EXELON [Suspect]
     Dosage: 18MG/10CM2

REACTIONS (6)
  - ABNORMAL BEHAVIOUR [None]
  - AGITATION [None]
  - DRUG INEFFECTIVE [None]
  - NIGHTMARE [None]
  - SCREAMING [None]
  - SLEEP DISORDER [None]
